FAERS Safety Report 25660324 (Version 1)
Quarter: 2025Q3

REPORT INFORMATION
  Report Type: Spontaneous
  Country: AU (occurrence: AU)
  Receive Date: 20250808
  Receipt Date: 20250808
  Transmission Date: 20251021
  Serious: Yes (Hospitalization)
  Sender: DOUGLAS PHARMACEUTICALS
  Company Number: AU-DOUGLAS PHARMACEUTICALS US-2025DGL00308

PATIENT

DRUGS (8)
  1. CLOZAPINE [Suspect]
     Active Substance: CLOZAPINE
     Dates: start: 20240514, end: 20240731
  2. VERSACLOZ [Suspect]
     Active Substance: CLOZAPINE
     Dates: start: 20250522, end: 20250624
  3. CLOZAPINE [Suspect]
     Active Substance: CLOZAPINE
     Dates: start: 20240801, end: 20240923
  4. CLOZAPINE [Suspect]
     Active Substance: CLOZAPINE
     Dates: start: 20240924, end: 20250117
  5. CLOZAPINE [Suspect]
     Active Substance: CLOZAPINE
     Dates: start: 20250118, end: 20250211
  6. CLOZAPINE [Suspect]
     Active Substance: CLOZAPINE
     Dates: start: 20250212, end: 20250408
  7. CLOZAPINE [Suspect]
     Active Substance: CLOZAPINE
     Dates: start: 20250409, end: 20250510
  8. CLOZAPINE [Suspect]
     Active Substance: CLOZAPINE
     Dates: start: 20250511, end: 20250521

REACTIONS (3)
  - Hospitalisation [Unknown]
  - Therapy interrupted [Unknown]
  - Unevaluable event [Unknown]

NARRATIVE: CASE EVENT DATE: 20250701
